FAERS Safety Report 21577131 (Version 1)
Quarter: 2022Q4

REPORT INFORMATION
  Report Type: Spontaneous
  Country: US (occurrence: US)
  Receive Date: 20221110
  Receipt Date: 20221110
  Transmission Date: 20230112
  Serious: No
  Sender: FDA-Public Use
  Company Number: US-NEUROCRINE BIOSCIENCES INC.-2022NBI07762

PATIENT

DRUGS (4)
  1. INGREZZA [Suspect]
     Active Substance: VALBENAZINE
     Indication: Tourette^s disorder
     Dosage: 40 MILLIGRAM
     Route: 048
  2. ABILIFY [Concomitant]
     Active Substance: ARIPIPRAZOLE
  3. ARTEMETHER [Concomitant]
     Active Substance: ARTEMETHER
  4. THORAZINE [Concomitant]
     Active Substance: CHLORPROMAZINE

REACTIONS (2)
  - Oculogyric crisis [Recovered/Resolved]
  - Off label use [Unknown]
